FAERS Safety Report 12927362 (Version 2)
Quarter: 2017Q4

REPORT INFORMATION
  Report Type: Spontaneous
  Country: US (occurrence: US)
  Receive Date: 20161109
  Receipt Date: 20171109
  Transmission Date: 20180320
  Serious: No
  Sender: FDA-Public Use
  Company Number: US-ALLERGAN-1654435US

PATIENT
  Sex: Male

DRUGS (1)
  1. ALPHAGAN P [Suspect]
     Active Substance: BRIMONIDINE TARTRATE
     Indication: MIOSIS
     Dosage: 2 GTT, QD
     Route: 047

REACTIONS (6)
  - Incorrect dose administered [Unknown]
  - Drug dose omission [Unknown]
  - Burning sensation [Unknown]
  - Off label use [Unknown]
  - Inappropriate schedule of drug administration [Unknown]
  - Pupillary disorder [Not Recovered/Not Resolved]
